FAERS Safety Report 11993750 (Version 1)
Quarter: 2016Q1

REPORT INFORMATION
  Report Type: Report from Study
  Country: BE (occurrence: BE)
  Receive Date: 20160203
  Receipt Date: 20160203
  Transmission Date: 20160526
  Serious: Yes (Life-Threatening, Hospitalization, Other)
  Sender: FDA-Public Use
  Company Number: BE-CELGENE-BEL-2015072677

PATIENT
  Age: 66 Year
  Sex: Female
  Weight: 58.8 kg

DRUGS (5)
  1. VIDAZA [Suspect]
     Active Substance: AZACITIDINE
     Route: 065
     Dates: start: 20150613, end: 20150803
  2. DLI [Suspect]
     Active Substance: LYMPHOCYTES
     Indication: PRODUCT USED FOR UNKNOWN INDICATION
     Route: 041
  3. VIDAZA [Suspect]
     Active Substance: AZACITIDINE
     Indication: PRODUCT USED FOR UNKNOWN INDICATION
     Route: 065
     Dates: start: 20150608, end: 20150630
  4. VIDAZA [Suspect]
     Active Substance: AZACITIDINE
     Route: 065
     Dates: start: 20150816, end: 20150907
  5. DLI [Suspect]
     Active Substance: LYMPHOCYTES
     Route: 041
     Dates: start: 20150715, end: 20150907

REACTIONS (10)
  - Cystitis [Recovered/Resolved]
  - Febrile neutropenia [Recovered/Resolved]
  - Disease progression [Not Recovered/Not Resolved]
  - Epstein-Barr virus infection [None]
  - Culture urine positive [None]
  - Gastritis [Recovered/Resolved]
  - General physical health deterioration [None]
  - Duodenitis [None]
  - Transplant rejection [Unknown]
  - Enterobacter test positive [None]

NARRATIVE: CASE EVENT DATE: 20150630
